FAERS Safety Report 14457923 (Version 1)
Quarter: 2018Q1

REPORT INFORMATION
  Report Type: Spontaneous
  Country: DE (occurrence: DE)
  Receive Date: 20180130
  Receipt Date: 20180130
  Transmission Date: 20180509
  Serious: Yes (Other)
  Sender: FDA-Public Use
  Company Number: DE-COLLEGIUM PHARMACEUTICAL, INC.-DE-2018DEP000141

PATIENT
  Age: 45 Year
  Sex: Male

DRUGS (4)
  1. METAMIZOLE [Concomitant]
     Active Substance: METAMIZOLE
     Indication: SPONDYLITIS
     Dosage: UNK
  2. TAPENTADOL HYDROCHLORIDE [Suspect]
     Active Substance: TAPENTADOL HYDROCHLORIDE
     Indication: SPONDYLITIS
     Dosage: 50 MG, BID
     Route: 048
  3. PROCAIN BENZYLPENI [Concomitant]
     Indication: LOCAL ANAESTHESIA
     Dosage: UNK
  4. TRIAMCINOLONE [Concomitant]
     Active Substance: TRIAMCINOLONE
     Indication: ANTIINFLAMMATORY THERAPY
     Dosage: UNK

REACTIONS (1)
  - Alanine aminotransferase increased [Not Recovered/Not Resolved]
